FAERS Safety Report 8312128 (Version 6)
Quarter: 2012Q4

REPORT INFORMATION
  Report Type: Report from Study
  Country: BE (occurrence: BE)
  Receive Date: 20111227
  Receipt Date: 20121203
  Transmission Date: 20130627
  Serious: Yes (Death)
  Sender: FDA-Public Use
  Company Number: BE-ROCHE-1024131

PATIENT
  Age: 74 Year
  Sex: Female

DRUGS (11)
  1. VEMURAFENIB [Suspect]
     Indication: METASTATIC MALIGNANT MELANOMA
     Route: 048
     Dates: start: 20111109, end: 20111217
  2. PANTOMED [Concomitant]
     Route: 065
     Dates: start: 201108, end: 20111217
  3. ALDACTONE [Concomitant]
     Route: 065
     Dates: start: 20111125, end: 20111217
  4. LASIX [Concomitant]
     Route: 065
     Dates: start: 20111125, end: 20111217
  5. TAMBOCOR [Concomitant]
     Route: 065
     Dates: start: 20111125, end: 20111217
  6. ZOCOR [Concomitant]
     Route: 065
     Dates: start: 20111125, end: 20111217
  7. SIPRALEXA [Concomitant]
     Route: 065
     Dates: start: 20111125, end: 20111217
  8. IMOVANE [Concomitant]
     Route: 065
     Dates: start: 20111125, end: 20111217
  9. DALACIN [Concomitant]
     Route: 065
     Dates: start: 20111126, end: 20111217
  10. ENTEROL [Concomitant]
     Route: 065
     Dates: start: 20111126, end: 20111217
  11. CLEXANE [Concomitant]
     Route: 065
     Dates: start: 20111125, end: 20111217

REACTIONS (1)
  - Death [Fatal]
